FAERS Safety Report 9028963 (Version 1)
Quarter: 2013Q1

REPORT INFORMATION
  Report Type: Spontaneous
  Country: GB (occurrence: GB)
  Receive Date: 20130124
  Receipt Date: 20130124
  Transmission Date: 20140127
  Serious: Yes (Other)
  Sender: FDA-Public Use
  Company Number: GB-PFIZER INC-2013022199

PATIENT
  Age: 26 Year
  Sex: Female

DRUGS (2)
  1. SUTENT [Suspect]
     Indication: HEPATIC CANCER
  2. SUTENT [Suspect]
     Indication: RENAL CANCER

REACTIONS (6)
  - Aphagia [Unknown]
  - Oral mucosal blistering [Unknown]
  - Vomiting [Unknown]
  - Blister [Unknown]
  - Hair colour changes [Unknown]
  - Trichorrhexis [Unknown]
